FAERS Safety Report 15748191 (Version 5)
Quarter: 2019Q2

REPORT INFORMATION
  Report Type: Report from Study
  Country: FI (occurrence: FI)
  Receive Date: 20181221
  Receipt Date: 20190603
  Transmission Date: 20190711
  Serious: Yes (Hospitalization)
  Sender: FDA-Public Use
  Company Number: FI-ROCHE-2233328

PATIENT
  Age: 48 Year
  Sex: Male
  Weight: 88 kg

DRUGS (5)
  1. VENETOCLAX. [Suspect]
     Active Substance: VENETOCLAX
     Indication: CHRONIC LYMPHOCYTIC LEUKAEMIA
     Dosage: (4 TABL. AT 100 MG)?LAST DOSE: 400 MG ON 14/DEC/2018
     Route: 048
     Dates: start: 20180912
  2. IBRUTINIB [Suspect]
     Active Substance: IBRUTINIB
     Indication: CHRONIC LYMPHOCYTIC LEUKAEMIA
     Dosage: LAST DOSE: 420 MG ON 14/DEC/2018
     Route: 048
     Dates: start: 20180912
  3. PRIMPERAN [Concomitant]
     Active Substance: METOCLOPRAMIDE HYDROCHLORIDE
     Route: 048
  4. PARACETAMOL [Concomitant]
     Active Substance: ACETAMINOPHEN
     Route: 048
     Dates: start: 20180912
  5. OBINUTUZUMAB. [Suspect]
     Active Substance: OBINUTUZUMAB
     Indication: CHRONIC LYMPHOCYTIC LEUKAEMIA
     Dosage: LAST DOSE: 1000 MG ON 05/DEC/2018
     Route: 042
     Dates: start: 20180912

REACTIONS (4)
  - Skin infection [Not Recovered/Not Resolved]
  - Arthritis [Recovering/Resolving]
  - Streptococcal infection [Recovered/Resolved]
  - Erysipelas [Recovering/Resolving]

NARRATIVE: CASE EVENT DATE: 20181211
